FAERS Safety Report 5455042-4 (Version None)
Quarter: 2007Q3

REPORT INFORMATION
  Report Type: 
  Country: None (occurrence: None)
  Receive Date: 20070918
  Receipt Date: 20070910
  Transmission Date: 20080115
  Serious: Yes (Other)
  Sender: FDA-Public Use
  Company Number: PHBS2007JP14692

PATIENT
  Age: 65 Year
  Sex: Female

DRUGS (9)
  1. ZOMETA [Suspect]
     Dosage: 4 MG, UNK
     Route: 042
     Dates: start: 20060501
  2. AREDIA [Suspect]
     Dates: end: 20050101
  3. ALENDRONATE SODIUM [Suspect]
     Dates: start: 20050101
  4. HYSRON [Concomitant]
  5. ARIMIDEX [Concomitant]
  6. FEMARA [Concomitant]
     Dates: start: 20070101
  7. MEDROXYPROGESTERONE [Concomitant]
  8. CYCLOPHOSPHAMIDE [Concomitant]
     Dates: start: 20060501
  9. DOXORUBICIN HCL [Concomitant]

REACTIONS (6)
  - COUGH [None]
  - METASTASES TO LYMPH NODES [None]
  - MYELITIS [None]
  - OSTEONECROSIS [None]
  - PERIODONTAL DISEASE [None]
  - TOOTHACHE [None]
